FAERS Safety Report 9182428 (Version 1)
Quarter: 2013Q1

REPORT INFORMATION
  Report Type: Spontaneous
  Country: US (occurrence: None)
  Receive Date: 20130321
  Receipt Date: 20130321
  Transmission Date: 20140127
  Serious: Yes (Other)
  Sender: FDA-Public Use
  Company Number: None

PATIENT
  Age: 59 Year
  Sex: Female
  Weight: 73.03 kg

DRUGS (2)
  1. AMITZA [Suspect]
     Dosage: 8MCG ?1 OR 2 DAILY BY MOUTH ; FEB 19 NO REATION SAMPLES - 5 PILLS
     Route: 048
  2. AMITIZA [Suspect]
     Dosage: 24 MCG UNKNOWN BY MOUTH FEB 21 SAMPLES 2 PILL REACTION
     Route: 048

REACTIONS (6)
  - Rash [None]
  - Swelling face [None]
  - Erythema [None]
  - Chest discomfort [None]
  - Myalgia [None]
  - Arthralgia [None]
